FAERS Safety Report 9477042 (Version 3)
Quarter: 2014Q1

REPORT INFORMATION
  Report Type: Spontaneous
  Country: US (occurrence: US)
  Receive Date: 20130826
  Receipt Date: 20140331
  Transmission Date: 20141002
  Serious: Yes (Other)
  Sender: FDA-Public Use
  Company Number: US-BAYER-2013-102849

PATIENT
  Age: 21 Year
  Sex: Female
  Weight: 72.56 kg

DRUGS (8)
  1. YAZ [Suspect]
     Indication: ACNE
     Dosage: UNK
     Dates: start: 2002, end: 201201
  2. YAZ [Suspect]
     Indication: DYSMENORRHOEA
     Dosage: UNK
     Dates: start: 2008, end: 201201
  3. YASMIN [Suspect]
     Indication: ACNE
     Dosage: UNK
     Dates: start: 2008, end: 201201
  4. YASMIN [Suspect]
     Indication: DYSMENORRHOEA
  5. BEYAZ [Suspect]
  6. KEPPRA [Concomitant]
     Indication: CONVULSION
     Dosage: 500 MG, BID
     Route: 048
     Dates: start: 2007
  7. TOPAMAX [Concomitant]
     Indication: CONVULSION
     Dosage: 200 MG, BID
     Dates: start: 2007
  8. CEPHALEXIN [Concomitant]
     Indication: ACNE
     Dosage: UNK
     Dates: start: 201109, end: 201110

REACTIONS (4)
  - Deep vein thrombosis [Recovered/Resolved]
  - Thrombosis [None]
  - Muscle spasms [Recovered/Resolved]
  - Injury [Recovered/Resolved]
